FAERS Safety Report 23684019 (Version 1)
Quarter: 2024Q1

REPORT INFORMATION
  Report Type: Spontaneous
  Country: FR (occurrence: FR)
  Receive Date: 20240328
  Receipt Date: 20240328
  Transmission Date: 20240410
  Serious: Yes (Hospitalization)
  Sender: FDA-Public Use
  Company Number: None

PATIENT
  Age: 35 Year
  Sex: Male
  Weight: 49 kg

DRUGS (5)
  1. FOSCARNET SODIUM [Suspect]
     Active Substance: FOSCARNET SODIUM
     Indication: Cytomegalovirus infection
     Dosage: 4000 MG/D?FORM OF ADMIN. - 1FP
     Route: 042
     Dates: start: 20231221, end: 20231224
  2. FLUCONAZOLE [Suspect]
     Active Substance: FLUCONAZOLE
     Indication: Fungal infection
     Dosage: 200 MG 3 TIMES A DAY
     Route: 048
     Dates: start: 20231222, end: 20231225
  3. BACTRIM [Suspect]
     Active Substance: SULFAMETHOXAZOLE\TRIMETHOPRIM
     Indication: Infection
     Dosage: 800MG/160MG PER DAY?FORM OF ADMIN. - 1FP
     Route: 048
     Dates: start: 20231224, end: 20231225
  4. RIFAMPIN [Concomitant]
     Active Substance: RIFAMPIN
     Indication: Tuberculosis
     Dosage: UNKNOWN DOSE?FORM OF ADMIN. - 1FP
     Route: 048
  5. CHLORPROMAZINE [Concomitant]
     Active Substance: CHLORPROMAZINE
     Indication: Agitation
     Dosage: UNKNOWN DOSE
     Route: 048
     Dates: start: 20231222, end: 20231223

REACTIONS (1)
  - Agranulocytosis [Recovered/Resolved]

NARRATIVE: CASE EVENT DATE: 20231225
